FAERS Safety Report 19930536 (Version 2)
Quarter: 2021Q4

REPORT INFORMATION
  Report Type: Spontaneous
  Country: US (occurrence: None)
  Receive Date: 20211007
  Receipt Date: 20211222
  Transmission Date: 20220303
  Serious: Yes (Hospitalization, Other)
  Sender: FDA-Public Use
  Company Number: 2021A753589

PATIENT
  Age: 574 Month
  Sex: Female
  Weight: 132.9 kg

DRUGS (98)
  1. NEXIUM [Suspect]
     Active Substance: ESOMEPRAZOLE MAGNESIUM
     Indication: Gastrooesophageal reflux disease
     Route: 048
     Dates: start: 2002, end: 2021
  2. NEXIUM [Suspect]
     Active Substance: ESOMEPRAZOLE MAGNESIUM
     Indication: Gastrooesophageal reflux disease
     Route: 048
     Dates: start: 2002, end: 2016
  3. NEXIUM [Suspect]
     Active Substance: ESOMEPRAZOLE MAGNESIUM
     Indication: Gastrooesophageal reflux disease
     Route: 065
     Dates: start: 2016
  4. PRILOSEC [Suspect]
     Active Substance: OMEPRAZOLE MAGNESIUM
     Indication: Gastrooesophageal reflux disease
     Route: 048
     Dates: start: 2002, end: 2021
  5. PRILOSEC [Suspect]
     Active Substance: OMEPRAZOLE MAGNESIUM
     Indication: Gastrooesophageal reflux disease
     Route: 048
     Dates: start: 2002
  6. ACETAMINOPHEN [Concomitant]
     Active Substance: ACETAMINOPHEN
     Indication: Pain
  7. ACTONEL [Concomitant]
     Active Substance: RISEDRONATE SODIUM
     Indication: Osteoporosis
  8. ADVAIR DISKUS [Concomitant]
     Active Substance: FLUTICASONE PROPIONATE\SALMETEROL XINAFOATE
     Indication: Asthma
  9. ADVAIR DISKUS [Concomitant]
     Active Substance: FLUTICASONE PROPIONATE\SALMETEROL XINAFOATE
     Indication: Chronic obstructive pulmonary disease
  10. ALBUTEROL [Concomitant]
     Active Substance: ALBUTEROL
     Indication: Bronchospasm
  11. ALPRAZOLAM [Concomitant]
     Active Substance: ALPRAZOLAM
     Indication: Anxiety
  12. AMBIEN [Concomitant]
     Active Substance: ZOLPIDEM TARTRATE
     Indication: Insomnia
  13. AMI-TEX LA [Concomitant]
     Indication: Cough
  14. AMOXICILLIN [Concomitant]
     Active Substance: AMOXICILLIN
     Indication: Infection
  15. ARNUITY ELLPITA [Concomitant]
     Indication: Asthma
  16. AUGMENTIN [Concomitant]
     Active Substance: AMOXICILLIN\CLAVULANATE POTASSIUM
     Indication: Infection
  17. AZITHROMYCIN [Concomitant]
     Active Substance: AZITHROMYCIN
     Indication: Infection
  18. BENZONATATE [Concomitant]
     Active Substance: BENZONATATE
     Indication: Cough
  19. BEXTRA [Concomitant]
     Active Substance: VALDECOXIB
     Indication: Osteoporosis
  20. BUSPIRONE [Concomitant]
     Active Substance: BUSPIRONE HYDROCHLORIDE
     Indication: Anxiety
  21. CEFADROXIL [Concomitant]
     Active Substance: CEFADROXIL
     Indication: Infection
  22. CEFDINIR [Concomitant]
     Active Substance: CEFDINIR
     Indication: Bacterial infection
  23. CEPHALEXIN [Concomitant]
     Active Substance: CEPHALEXIN
     Indication: Infection
  24. AMMONIUM CHLORIDE\DEXTROMETHORPHAN\SODIUM CITRATE [Concomitant]
     Active Substance: AMMONIUM CHLORIDE\DEXTROMETHORPHAN\SODIUM CITRATE
     Indication: Cough
  25. CHOLESTYRAMINE [Concomitant]
     Active Substance: CHOLESTYRAMINE
     Indication: Blood cholesterol increased
  26. CIPROFLOXAACN [Concomitant]
     Indication: Infection
  27. CLINDAMYCIN [Concomitant]
     Active Substance: CLINDAMYCIN
     Indication: Infection
  28. COMPRO [Concomitant]
     Active Substance: PROCHLORPERAZINE
     Indication: Nausea
  29. CONTRAVE [Concomitant]
     Active Substance: BUPROPION HYDROCHLORIDE\NALTREXONE HYDROCHLORIDE
     Indication: Weight decreased
  30. CYCLOBENZAPRINE [Concomitant]
     Active Substance: CYCLOBENZAPRINE
     Indication: Pain
  31. DIAZEPAM [Concomitant]
     Active Substance: DIAZEPAM
     Indication: Anxiety
  32. DICYCLOMINE [Concomitant]
     Active Substance: DICYCLOMINE HYDROCHLORIDE
     Indication: Irritable bowel syndrome
  33. DIFLUCAN [Concomitant]
     Active Substance: FLUCONAZOLE
     Indication: Fungal infection
  34. DILTIAZEM [Concomitant]
     Active Substance: DILTIAZEM
     Indication: Hypertension
  35. DULERA [Concomitant]
     Active Substance: FORMOTEROL FUMARATE DIHYDRATE\MOMETASONE FUROATE
     Indication: Asthma
  36. ELIQUIS [Concomitant]
     Active Substance: APIXABAN
     Indication: Cerebrovascular accident
  37. ENDOCET [Concomitant]
     Active Substance: ACETAMINOPHEN\OXYCODONE HYDROCHLORIDE
     Indication: Pain
  38. ERYTHROMYCIN [Concomitant]
     Active Substance: ERYTHROMYCIN
     Indication: Bacterial infection
  39. ESTRADIOL [Concomitant]
     Active Substance: ESTRADIOL
     Indication: Menopause
  40. EZETIMIBE [Concomitant]
     Active Substance: EZETIMIBE
     Indication: Blood cholesterol increased
  41. FAMOTIDINE [Concomitant]
     Active Substance: FAMOTIDINE
     Indication: Ulcer
  42. FLONASE [Concomitant]
     Active Substance: FLUTICASONE PROPIONATE
     Indication: Hypersensitivity
  43. FLUCONAZOLE [Concomitant]
     Active Substance: FLUCONAZOLE
     Indication: Fungal infection
  44. FLUOXETINE [Concomitant]
     Active Substance: FLUOXETINE HYDROCHLORIDE
     Indication: Depression
  45. FLUOXETINE [Concomitant]
     Active Substance: FLUOXETINE HYDROCHLORIDE
     Indication: Chronic obstructive pulmonary disease
  46. FUROSEMIDE [Concomitant]
     Active Substance: FUROSEMIDE
     Indication: Hypertension
  47. GABAPENTIN [Concomitant]
     Active Substance: GABAPENTIN
     Indication: Seizure
  48. HUMALOG [Concomitant]
     Active Substance: INSULIN LISPRO
     Indication: Diabetes mellitus
  49. HYDROCODONE [Concomitant]
     Active Substance: HYDROCODONE
     Indication: Hypersensitivity
  50. ACETAMINOPHEN\HYDROCODONE [Concomitant]
     Active Substance: ACETAMINOPHEN\HYDROCODONE
     Indication: Pain
  51. YHYDROXYLINE HCL [Concomitant]
     Indication: Anxiety
  52. HYOSCYAMINE [Concomitant]
     Active Substance: HYOSCYAMINE
     Indication: Gastrointestinal tract irritation
  53. IBUPROFEN [Concomitant]
     Active Substance: IBUPROFEN
     Indication: Pyrexia
  54. ALBUTEROL [Concomitant]
     Active Substance: ALBUTEROL
     Indication: Asthma
  55. KETEK [Concomitant]
     Active Substance: TELITHROMYCIN
     Indication: Pneumonia
  56. KETOROLAC [Concomitant]
     Active Substance: KETOROLAC TROMETHAMINE
     Indication: Pain
  57. LANTUS [Concomitant]
     Active Substance: INSULIN GLARGINE
     Indication: Diabetes mellitus
  58. LEVAQUIN [Concomitant]
     Active Substance: LEVOFLOXACIN
     Indication: Infection
  59. LEVOTHYROXINE [Concomitant]
     Active Substance: LEVOTHYROXINE
     Indication: Hypothyroidism
  60. LEXAPRO [Concomitant]
     Active Substance: ESCITALOPRAM OXALATE
     Indication: Depression
  61. LIDODERM [Concomitant]
     Active Substance: LIDOCAINE
     Indication: Neuralgia
  62. LIPITOR [Concomitant]
     Active Substance: ATORVASTATIN CALCIUM
     Indication: Blood cholesterol increased
  63. LINZESS [Concomitant]
     Active Substance: LINACLOTIDE
     Indication: Irritable bowel syndrome
  64. LISINOPRIL [Concomitant]
     Active Substance: LISINOPRIL
     Indication: Hypertension
  65. LORAZEPAM [Concomitant]
     Active Substance: LORAZEPAM
     Indication: Anxiety
  66. LOVASTATIN [Concomitant]
     Active Substance: LOVASTATIN
     Indication: Blood cholesterol increased
  67. MACROBID [Concomitant]
     Active Substance: NITROFURANTOIN\NITROFURANTOIN MONOHYDRATE
     Indication: Urinary tract infection
  68. MELOXICAM [Concomitant]
     Active Substance: MELOXICAM
     Indication: Arthritis
  69. MEPERIDINE [Concomitant]
     Active Substance: MEPERIDINE
     Indication: Pain
  70. METOPROLOL TARTRATE [Concomitant]
     Active Substance: METOPROLOL TARTRATE
     Indication: Hypertension
  71. METROGEL [Concomitant]
     Active Substance: METRONIDAZOLE
     Indication: Skin infection
  72. MIRALAX [Concomitant]
     Active Substance: POLYETHYLENE GLYCOL 3350
     Indication: Constipation
  73. MODAFINIL [Concomitant]
     Active Substance: MODAFINIL
     Indication: Sleep apnoea syndrome
  74. MONTELUKAST [Concomitant]
     Active Substance: MONTELUKAST SODIUM
     Indication: Asthma
  75. MUPIROCIN [Concomitant]
     Active Substance: MUPIROCIN
     Indication: Skin infection
  76. NAPROXEN [Concomitant]
     Active Substance: NAPROXEN
     Indication: Pyrexia
  77. NASONEX [Concomitant]
     Active Substance: MOMETASONE FUROATE
     Indication: Hypersensitivity
  78. NOVOLOG [Concomitant]
     Active Substance: INSULIN ASPART
     Indication: Type 2 diabetes mellitus
  79. PENICILLIN [Concomitant]
     Active Substance: PENICILLIN
     Indication: Infection
  80. PIROXICAM [Concomitant]
     Active Substance: PIROXICAM
     Indication: Pain
  81. POLYETHYLENE GLYCOL [Concomitant]
     Active Substance: POLYETHYLENE GLYCOL
     Indication: Constipation
  82. PREDNISONE [Concomitant]
     Active Substance: PREDNISONE
     Indication: Inflammation
  83. PROAIR HFA [Concomitant]
     Active Substance: ALBUTEROL SULFATE
     Indication: Bronchospasm
  84. PROVIGIL [Concomitant]
     Active Substance: MODAFINIL
     Indication: Sleep apnoea syndrome
  85. QSYMIA [Concomitant]
     Active Substance: PHENTERMINE HYDROCHLORIDE\TOPIRAMATE
     Indication: Weight decreased
  86. RAMIPRIL [Concomitant]
     Active Substance: RAMIPRIL
     Indication: Cardiac failure
  87. ROSUVASTATIN [Concomitant]
     Active Substance: ROSUVASTATIN
     Indication: Blood cholesterol increased
  88. SINGULAIR [Concomitant]
     Active Substance: MONTELUKAST SODIUM
     Indication: Asthma
  89. SYMBICORT [Concomitant]
     Active Substance: BUDESONIDE\FORMOTEROL FUMARATE DIHYDRATE
     Indication: Asthma
  90. TEQUIN [Concomitant]
     Active Substance: GATIFLOXACIN
     Indication: Bacterial infection
  91. TRAMADOL [Concomitant]
     Active Substance: TRAMADOL
     Indication: Pain
  92. TRAZODONE [Concomitant]
     Active Substance: TRAZODONE HYDROCHLORIDE
     Indication: Gastric ulcer
  93. VITAMIN D [Concomitant]
     Active Substance: VITAMIN D NOS
     Indication: Hypoparathyroidism
  94. VENTOLIN [Concomitant]
     Active Substance: ALBUTEROL SULFATE
     Indication: Bronchospasm
  95. ZETIA [Concomitant]
     Active Substance: EZETIMIBE
     Indication: Blood cholesterol increased
  96. ZOLPIDEM [Concomitant]
     Active Substance: ZOLPIDEM TARTRATE
     Indication: Insomnia
  97. ZITHROMAX [Concomitant]
     Active Substance: AZITHROMYCIN DIHYDRATE
     Indication: Infection
  98. TUMS [Concomitant]
     Active Substance: CALCIUM CARBONATE

REACTIONS (2)
  - Acute kidney injury [Not Recovered/Not Resolved]
  - Chronic kidney disease [Not Recovered/Not Resolved]

NARRATIVE: CASE EVENT DATE: 20190301
